FAERS Safety Report 4633120-7 (Version None)
Quarter: 2005Q2

REPORT INFORMATION
  Report Type: 
  Country: None (occurrence: None)
  Receive Date: 20050412
  Receipt Date: 20041201
  Transmission Date: 20051028
  Serious: Yes (Other)
  Sender: FDA-Public Use
  Company Number: JP-GLAXOSMITHKLINE-B0359069A

PATIENT
  Age: 29 Year
  Sex: Female
  Weight: 53 kg

DRUGS (7)
  1. PAXIL [Suspect]
     Indication: PANIC DISORDER
     Route: 048
     Dates: start: 20040608, end: 20041021
  2. DOMPERIDONE [Concomitant]
     Indication: NAUSEA
     Dosage: 10MG PER DAY
     Route: 048
     Dates: start: 20040608, end: 20041021
  3. SULPIRIDE [Concomitant]
     Indication: DEPRESSED MOOD
     Dosage: 25MG THREE TIMES PER DAY
     Route: 048
     Dates: start: 20040615, end: 20040727
  4. MENBIT [Concomitant]
     Indication: ANXIETY
     Route: 048
     Dates: start: 20040615, end: 20041209
  5. RIZE [Concomitant]
     Indication: DEPRESSED MOOD
     Dosage: 7.5MG PER DAY
     Route: 048
     Dates: start: 20040615, end: 20040727
  6. MEILAX [Concomitant]
     Indication: ANXIETY
     Dosage: 1MG PER DAY
     Route: 048
     Dates: start: 20041111, end: 20041207
  7. MERCAZOL [Concomitant]
     Indication: HYPERTHYROIDISM
     Dosage: 1UNIT PER DAY
     Route: 048
     Dates: start: 20041007, end: 20041020

REACTIONS (6)
  - ALANINE AMINOTRANSFERASE INCREASED [None]
  - ASPARTATE AMINOTRANSFERASE INCREASED [None]
  - BLOOD ALKALINE PHOSPHATASE INCREASED [None]
  - GAMMA-GLUTAMYLTRANSFERASE INCREASED [None]
  - LIVER FUNCTION TEST ABNORMAL [None]
  - WEIGHT INCREASED [None]
